FAERS Safety Report 4299295-7 (Version None)
Quarter: 2004Q1

REPORT INFORMATION
  Report Type: 
  Country: None (occurrence: None)
  Receive Date: 20040217
  Receipt Date: 20040209
  Transmission Date: 20041129
  Serious: Yes (Hospitalization)
  Sender: FDA-Public Use
  Company Number: US066227

PATIENT
  Age: 86 Year
  Sex: Male
  Weight: 77.2 kg

DRUGS (8)
  1. PROCRIT [Suspect]
     Indication: ANAEMIA
     Dosage: 10000 U, 1 IN 2 WEEKS
     Dates: start: 20010101
  2. LEVOXYL [Concomitant]
  3. FUROSEMIDE [Concomitant]
  4. SIMVASTATIN [Concomitant]
  5. POTASSIUM CHLORIDE [Concomitant]
  6. SPIRONOLACTONE [Concomitant]
  7. CALCIUM CARBONATE [Concomitant]
  8. AMIODARONE HYDROCHLORIDE [Concomitant]

REACTIONS (2)
  - DEHYDRATION [None]
  - RASH [None]
